FAERS Safety Report 4290262-6 (Version None)
Quarter: 2004Q1

REPORT INFORMATION
  Report Type: 
  Country: None (occurrence: None)
  Receive Date: 20040126
  Receipt Date: 20031103
  Transmission Date: 20041129
  Serious: Yes (Other)
  Sender: FDA-Public Use
  Company Number: USA030434979

PATIENT
  Age: 74 Year
  Sex: Female
  Weight: 48 kg

DRUGS (8)
  1. EVISTA [Suspect]
     Indication: OSTEOPOROSIS
  2. FORTEO [Suspect]
     Indication: OSTEOPOROSIS
     Dosage: 20 UG/DAY
     Dates: start: 20030314
  3. PREVACID [Concomitant]
  4. CLINORIL [Concomitant]
  5. PROCARDIA [Concomitant]
  6. LOPRESSOR [Concomitant]
  7. DYAZIDE [Concomitant]
  8. IMURAN [Concomitant]

REACTIONS (7)
  - BACK PAIN [None]
  - CHAPPED LIPS [None]
  - INFLUENZA LIKE ILLNESS [None]
  - LIP PAIN [None]
  - PAIN [None]
  - SKIN CANCER [None]
  - SWELLING FACE [None]
